FAERS Safety Report 10420077 (Version 1)
Quarter: 2014Q3

REPORT INFORMATION
  Report Type: Spontaneous
  Country: VE (occurrence: None)
  Receive Date: 20140828
  Receipt Date: 20140828
  Transmission Date: 20150326
  Serious: Yes (Other)
  Sender: FDA-Public Use
  Company Number: VE-002981

PATIENT
  Age: 12 Year
  Sex: Female

DRUGS (1)
  1. MILTEFOSINE [Suspect]
     Active Substance: MILTEFOSINE
     Indication: CUTANEOUS LEISHMANIASIS

REACTIONS (4)
  - Abdominal pain [None]
  - Blood alkaline phosphatase increased [None]
  - Nausea [None]
  - Vomiting [None]
